FAERS Safety Report 22587938 (Version 1)
Quarter: 2023Q2

REPORT INFORMATION
  Report Type: Spontaneous
  Country: CO (occurrence: CO)
  Receive Date: 20230612
  Receipt Date: 20230612
  Transmission Date: 20230722
  Serious: Yes (Other)
  Sender: FDA-Public Use
  Company Number: CO-PFIZER INC-PV202300099813

PATIENT
  Age: 42 Year
  Sex: Female

DRUGS (1)
  1. ENBREL [Suspect]
     Active Substance: ETANERCEPT
     Indication: Rheumatoid arthritis
     Dosage: 50 MG, UNSPECIFIED FREQUENCY
     Route: 058

REACTIONS (3)
  - Gait disturbance [Unknown]
  - Circumstance or information capable of leading to medication error [Unknown]
  - Pain [Unknown]

NARRATIVE: CASE EVENT DATE: 20230501
